FAERS Safety Report 6199133-1 (Version None)
Quarter: 2009Q2

REPORT INFORMATION
  Report Type: 
  Country: None (occurrence: None)
  Receive Date: 20090522
  Receipt Date: 20090515
  Transmission Date: 20091009
  Serious: Yes (Hospitalization)
  Sender: FDA-Public Use
  Company Number: MX-ROCHE-631532

PATIENT
  Sex: Female

DRUGS (5)
  1. BONIVA [Suspect]
     Indication: OSTEOPOROSIS POSTMENOPAUSAL
     Dosage: DOSE : 3 MG / 3 ML , FREQUENCY : UNIC DOSE
     Route: 042
     Dates: start: 20090416, end: 20090416
  2. MICARDIS HCT [Concomitant]
     Indication: HYPERTENSION
     Dosage: FREQUENCY: 1/2 TABLET QD
     Route: 048
  3. BENZODIAZEPINE [Concomitant]
     Route: 048
  4. ACETYLSALICYLIC ACID [Concomitant]
     Route: 048
  5. MELOXICAM [Concomitant]
     Route: 048

REACTIONS (6)
  - ASTHENIA [None]
  - HYPOTENSION [None]
  - MYALGIA [None]
  - OEDEMA [None]
  - POLYURIA [None]
  - RENAL FAILURE ACUTE [None]
